FAERS Safety Report 11645466 (Version 2)
Quarter: 2016Q3

REPORT INFORMATION
  Report Type: Spontaneous
  Country: JP (occurrence: JP)
  Receive Date: 20151020
  Receipt Date: 20160729
  Transmission Date: 20161109
  Serious: Yes (Other)
  Sender: FDA-Public Use
  Company Number: JP-BRISTOL-MYERS SQUIBB COMPANY-BMS-2015-071863

PATIENT
  Age: 55 Year
  Sex: Female

DRUGS (2)
  1. METGLUCO [Suspect]
     Active Substance: METFORMIN HYDROCHLORIDE
     Indication: DIABETES MELLITUS
     Dosage: 250 MG, TID
     Route: 048
  2. VOGLIBOSE [Suspect]
     Active Substance: VOGLIBOSE
     Indication: DIABETES MELLITUS
     Dosage: 0.2 MG, TID
     Route: 048

REACTIONS (9)
  - Gamma-glutamyltransferase increased [Unknown]
  - Jaundice [Recovered/Resolved]
  - Alanine aminotransferase increased [Unknown]
  - Cholestasis [Unknown]
  - Blood alkaline phosphatase increased [Unknown]
  - Crystal urine present [Unknown]
  - Chromaturia [Unknown]
  - Blood bilirubin increased [Unknown]
  - Transaminases increased [Unknown]
